FAERS Safety Report 21566129 (Version 2)
Quarter: 2022Q4

REPORT INFORMATION
  Report Type: Spontaneous
  Country: NL (occurrence: NL)
  Receive Date: 20221108
  Receipt Date: 20221213
  Transmission Date: 20230113
  Serious: Yes (Other)
  Sender: FDA-Public Use
  Company Number: None

PATIENT
  Sex: Female

DRUGS (6)
  1. CARBAMAZEPINE [Interacting]
     Active Substance: CARBAMAZEPINE
     Indication: Epilepsy
     Dosage: 400 MILLIGRAM, BID (2X PER DAY 2 PIECE)
     Route: 065
     Dates: start: 19921012
  2. FLUCONAZOLE [Interacting]
     Active Substance: FLUCONAZOLE
     Indication: Onychomycosis
     Dosage: 150 MILLIGRAM, QW (1X PER WEEK 1 CAPSULE)
     Route: 065
     Dates: start: 20220902, end: 20220910
  3. FLUTICASONE PROPIONATE\SALMETEROL XINAFOATE [Concomitant]
     Active Substance: FLUTICASONE PROPIONATE\SALMETEROL XINAFOATE
     Indication: Asthma
     Dosage: POWDER FOR INHALATION, 60DO
     Route: 065
  4. ALBUTEROL [Concomitant]
     Active Substance: ALBUTEROL
     Indication: Asthma
     Dosage: 200 MICROGRAM, AS NEEDED, INHALATION POWDER
     Route: 065
  5. LACOSAMIDE [Concomitant]
     Active Substance: LACOSAMIDE
     Indication: Epilepsy
     Dosage: 50 MILLIGRAM, 12 HOURS (2X PER DAY 1 TABLET)
     Route: 065
  6. LAMOTRIGINE [Concomitant]
     Active Substance: LAMOTRIGINE
     Indication: Epilepsy
     Dosage: 200 MILLIGRAM, 12 HOURS, (2X PER DAY 1 TABLET)
     Route: 065

REACTIONS (4)
  - Epilepsy [Recovered/Resolved]
  - Visual impairment [Recovered/Resolved]
  - Dizziness [Recovered/Resolved]
  - Drug interaction [Recovered/Resolved]
